FAERS Safety Report 5313958-3 (Version None)
Quarter: 2007Q2

REPORT INFORMATION
  Report Type: 
  Country: None (occurrence: None)
  Receive Date: 20070501
  Receipt Date: 20070419
  Transmission Date: 20071010
  Serious: Yes (Hospitalization)
  Sender: FDA-Public Use
  Company Number: JP-PFIZER INC-2007021217

PATIENT
  Sex: Female
  Weight: 45 kg

DRUGS (11)
  1. SOLU-MEDROL [Suspect]
     Route: 042
     Dates: start: 20070222, end: 20070224
  2. OXYGEN [Concomitant]
     Indication: EMPHYSEMA
  3. PREDONINE [Concomitant]
     Route: 048
  4. TAMIFLU [Concomitant]
     Route: 048
     Dates: start: 20070220, end: 20070224
  5. VENOGLOBULIN [Concomitant]
     Route: 042
     Dates: start: 20070221, end: 20070225
  6. UNASYN [Concomitant]
     Route: 042
     Dates: start: 20070220, end: 20070226
  7. THEOLONG [Concomitant]
     Route: 048
     Dates: start: 20070227, end: 20070309
  8. OMEPRAL [Concomitant]
     Route: 048
     Dates: start: 20070220
  9. AMLODIN [Concomitant]
     Route: 048
     Dates: start: 20070222
  10. THYRADIN S [Concomitant]
     Route: 048
     Dates: start: 20070224
  11. OLMETEC [Concomitant]
     Route: 048
     Dates: start: 20070228

REACTIONS (1)
  - BLOOD AMYLASE INCREASED [None]
